FAERS Safety Report 8339084-7 (Version None)
Quarter: 2012Q2

REPORT INFORMATION
  Report Type: 
  Country: None (occurrence: None)
  Receive Date: 20120502
  Receipt Date: 20120426
  Transmission Date: 20120825
  Serious: Yes (Hospitalization, Other)
  Sender: FDA-Public Use
  Company Number: 2012040150

PATIENT
  Age: 69 Year
  Sex: Male

DRUGS (3)
  1. ZOLPIDEM [Suspect]
     Indication: INSOMNIA
  2. NAPROXEN [Concomitant]
  3. DULOXETINE HYDROCHLORIDE [Concomitant]

REACTIONS (16)
  - LOOSE ASSOCIATIONS [None]
  - DISTURBANCE IN ATTENTION [None]
  - DELUSION [None]
  - ABNORMAL BEHAVIOUR [None]
  - DRUG ABUSE [None]
  - INCOHERENT [None]
  - DRUG DIVERSION [None]
  - PAIN [None]
  - HALLUCINATION [None]
  - INTENTIONAL SELF-INJURY [None]
  - LOSS OF CONSCIOUSNESS [None]
  - DEPRESSED LEVEL OF CONSCIOUSNESS [None]
  - ILLUSION [None]
  - PSYCHOPATHIC PERSONALITY [None]
  - TOXICITY TO VARIOUS AGENTS [None]
  - DELIRIUM [None]
